FAERS Safety Report 16482352 (Version 1)
Quarter: 2019Q2

REPORT INFORMATION
  Report Type: Spontaneous
  Country: SE (occurrence: SE)
  Receive Date: 20190627
  Receipt Date: 20190627
  Transmission Date: 20190711
  Serious: Yes (Hospitalization)
  Sender: FDA-Public Use
  Company Number: SE-TEVA-2019-SE-1069812

PATIENT
  Age: 51 Year
  Sex: Male

DRUGS (2)
  1. LERGIGAN [PROMETHAZINE HYDROCHLORIDE] [Suspect]
     Active Substance: PROMETHAZINE HYDROCHLORIDE
     Dosage: 5 X 25 MG
     Route: 048
     Dates: start: 20190316, end: 20190316
  2. OXASCAND 10 MG TABLETT [Suspect]
     Active Substance: OXAZEPAM
     Route: 048
     Dates: start: 20190316, end: 20190316

REACTIONS (3)
  - Intentional self-injury [Unknown]
  - Intentional overdose [Unknown]
  - Fatigue [Unknown]

NARRATIVE: CASE EVENT DATE: 20190316
